FAERS Safety Report 11196555 (Version 1)
Quarter: 2015Q2

REPORT INFORMATION
  Report Type: Spontaneous
  Country: US (occurrence: None)
  Receive Date: 20150616
  Receipt Date: 20150616
  Transmission Date: 20150821
  Serious: Yes (Hospitalization)
  Sender: FDA-Public Use
  Company Number: None

PATIENT
  Age: 90 Year
  Sex: Female
  Weight: 40.82 kg

DRUGS (9)
  1. ALBUTEROL. [Concomitant]
     Active Substance: ALBUTEROL
  2. PREDNISONE (3 MG) [Concomitant]
  3. TIMOLOL [Concomitant]
     Active Substance: TIMOLOL
  4. CITRACAL [Concomitant]
     Active Substance: CALCIUM CITRATE
  5. ALDACTONE [Concomitant]
     Active Substance: SPIRONOLACTONE
  6. VITAMIN D [Concomitant]
     Active Substance: CHOLECALCIFEROL
  7. TENORMIN [Concomitant]
     Active Substance: ATENOLOL
  8. EYLEA [Suspect]
     Active Substance: AFLIBERCEPT
     Indication: MACULAR DEGENERATION
     Dosage: INJECTION, INTO THE EYE
     Route: 047
     Dates: start: 20140720, end: 20140819
  9. 81 MG ASPIRIN [Concomitant]

REACTIONS (1)
  - Transient ischaemic attack [None]

NARRATIVE: CASE EVENT DATE: 20140916
